FAERS Safety Report 9380640 (Version 1)
Quarter: 2013Q3

REPORT INFORMATION
  Report Type: Spontaneous
  Country: US (occurrence: US)
  Receive Date: 20130702
  Receipt Date: 20130702
  Transmission Date: 20140515
  Serious: No
  Sender: FDA-Public Use
  Company Number: US-009507513-1306USA014399

PATIENT
  Sex: 0

DRUGS (2)
  1. CLARINEX-D-12 [Suspect]
     Indication: HYPERSENSITIVITY
     Dosage: UNK UNK, TID
     Route: 048
  2. CLARINEX-D-12 [Suspect]
     Indication: SINUS HEADACHE

REACTIONS (1)
  - Inappropriate schedule of drug administration [Unknown]
